FAERS Safety Report 6451446-1 (Version None)
Quarter: 2009Q4

REPORT INFORMATION
  Report Type: 
  Country: None (occurrence: None)
  Receive Date: 20091123
  Receipt Date: 20081124
  Transmission Date: 20100525
  Serious: No
  Sender: FDA-Public Use
  Company Number: US-BRISTOL-MYERS SQUIBB COMPANY-14420558

PATIENT
  Age: 64 Year
  Sex: Female

DRUGS (7)
  1. AVALIDE [Suspect]
     Indication: BLOOD PRESSURE
     Dosage: 1 DOSAGE FORM= 150/12.5MG;MORNING.
     Dates: start: 20080901
  2. AVALIDE [Suspect]
     Indication: ATRIAL FIBRILLATION
     Dosage: 1 DOSAGE FORM= 150/12.5MG;MORNING.
     Dates: start: 20080901
  3. AMIODARONE HCL [Concomitant]
  4. FOSAMAX [Concomitant]
  5. LIPITOR [Concomitant]
  6. AMBIEN [Concomitant]
  7. XANAX [Concomitant]

REACTIONS (1)
  - ALOPECIA [None]
